FAERS Safety Report 16766965 (Version 2)
Quarter: 2019Q3

REPORT INFORMATION
  Report Type: Spontaneous
  Country: AE (occurrence: AE)
  Receive Date: 20190903
  Receipt Date: 20190916
  Transmission Date: 20191005
  Serious: Yes (Other)
  Sender: FDA-Public Use
  Company Number: AE-ROCHE-2388300

PATIENT

DRUGS (2)
  1. OCREVUS [Suspect]
     Active Substance: OCRELIZUMAB
     Indication: MULTIPLE SCLEROSIS
     Route: 065
  2. ZOLEDRONIC ACID [Interacting]
     Active Substance: ZOLEDRONIC ACID
     Indication: OSTEOPENIA
     Route: 065

REACTIONS (4)
  - Osteopenia [Unknown]
  - Fatigue [Unknown]
  - Drug interaction [Unknown]
  - Drug hypersensitivity [Unknown]
